FAERS Safety Report 6882362-9 (Version None)
Quarter: 2010Q3

REPORT INFORMATION
  Report Type: 
  Country: None (occurrence: None)
  Receive Date: 20100729
  Receipt Date: 20100621
  Transmission Date: 20110219
  Serious: No
  Sender: FDA-Public Use
  Company Number: US-MYLANLABS-2010S1009413

PATIENT
  Age: 56 Year
  Sex: Female

DRUGS (2)
  1. LEVOTHYROXINE SODIUM [Suspect]
     Indication: HYPOTHYROIDISM
     Route: 048
     Dates: start: 20091001, end: 20100525
  2. ADDERALL 10 [Concomitant]

REACTIONS (4)
  - DRUG EFFECT INCREASED [None]
  - INCREASED APPETITE [None]
  - PALPITATIONS [None]
  - TEMPERATURE INTOLERANCE [None]
